FAERS Safety Report 13859957 (Version 3)
Quarter: 2018Q1

REPORT INFORMATION
  Report Type: Spontaneous
  Country: US (occurrence: US)
  Receive Date: 20170811
  Receipt Date: 20180322
  Transmission Date: 20180508
  Serious: Yes (Life-Threatening, Hospitalization, Other)
  Sender: FDA-Public Use
  Company Number: US-AUROBINDO-AUR-APL-2017-38558

PATIENT
  Age: 32 Year
  Sex: Male

DRUGS (5)
  1. FAMOTIDINE. [Interacting]
     Active Substance: FAMOTIDINE
     Indication: PRODUCT USED FOR UNKNOWN INDICATION
     Dosage: MULTIPLE DOSES DAILY
     Route: 065
  2. FAMOTIDINE. [Interacting]
     Active Substance: FAMOTIDINE
     Dosage: 500 MILLIGRAM
     Route: 065
  3. LOPERAMIDE [Interacting]
     Active Substance: LOPERAMIDE
     Dosage: UNK
     Route: 065
  4. FAMOTIDINE. [Interacting]
     Active Substance: FAMOTIDINE
     Dosage: UNK
     Route: 065
  5. LOPERAMIDE [Suspect]
     Active Substance: LOPERAMIDE
     Indication: PRODUCT USED FOR UNKNOWN INDICATION
     Dosage: 200 MG, DAILY
     Route: 065

REACTIONS (10)
  - Atrioventricular block first degree [Recovered/Resolved]
  - Drug interaction [Recovered/Resolved]
  - Ventricular tachycardia [Recovered/Resolved]
  - Electrocardiogram QT prolonged [Recovered/Resolved]
  - Conduction disorder [Recovered/Resolved]
  - Palpitations [Recovered/Resolved]
  - Overdose [Recovered/Resolved]
  - Toxicity to various agents [Recovered/Resolved]
  - Syncope [Recovered/Resolved]
  - Drug abuse [Recovered/Resolved]
